FAERS Safety Report 7073184-7 (Version None)
Quarter: 2010Q4

REPORT INFORMATION
  Report Type: 
  Country: None (occurrence: None)
  Receive Date: 20101029
  Receipt Date: 20101019
  Transmission Date: 20110411
  Serious: Yes (Other)
  Sender: FDA-Public Use
  Company Number: B0681703A

PATIENT
  Age: 54 Year
  Sex: Male
  Weight: 168 kg

DRUGS (2)
  1. ALLI [Suspect]
     Indication: OVERWEIGHT
     Dosage: 60MG THREE TIMES PER DAY
     Route: 048
  2. XENICAL [Concomitant]

REACTIONS (9)
  - ASPHYXIA [None]
  - DRY MOUTH [None]
  - DYSGEUSIA [None]
  - DYSPHAGIA [None]
  - ERYTHEMA [None]
  - ILL-DEFINED DISORDER [None]
  - INSOMNIA [None]
  - PRURITUS [None]
  - TACHYCARDIA [None]
